FAERS Safety Report 4635043-6 (Version None)
Quarter: 2005Q2

REPORT INFORMATION
  Report Type: 
  Country: None (occurrence: None)
  Receive Date: 20050411
  Receipt Date: 20050328
  Transmission Date: 20051028
  Serious: Yes (Life-Threatening, Hospitalization, Other)
  Sender: FDA-Public Use
  Company Number: 0205011

PATIENT
  Age: 74 Year
  Sex: Male
  Weight: 111.1313 kg

DRUGS (1)
  1. DEPODUR [Suspect]
     Indication: POSTOPERATIVE ANALGESIA
     Dosage: 10 MG, ONCE, EPIDURAL
     Route: 008
     Dates: start: 20050322, end: 20050322

REACTIONS (10)
  - BRADYCARDIA [None]
  - CARDIAC ARREST [None]
  - CARDIAC ENZYMES INCREASED [None]
  - CHEST PAIN [None]
  - MYOCARDIAL INFARCTION [None]
  - OXYGEN SATURATION DECREASED [None]
  - RESPIRATORY ARREST [None]
  - RESPIRATORY DEPRESSION [None]
  - SLEEP APNOEA SYNDROME [None]
  - VENTRICULAR DYSFUNCTION [None]
